FAERS Safety Report 24319892 (Version 2)
Quarter: 2024Q4

REPORT INFORMATION
  Report Type: Spontaneous
  Country: FR (occurrence: FR)
  Receive Date: 20240914
  Receipt Date: 20241014
  Transmission Date: 20250115
  Serious: Yes (Hospitalization, Other)
  Sender: ACCORD
  Company Number: FR-BRISTOL-MYERS SQUIBB COMPANY-2024-036009

PATIENT
  Age: 81 Year
  Sex: Male

DRUGS (1)
  1. APIXABAN [Suspect]
     Active Substance: APIXABAN
     Indication: Atrial fibrillation
     Dosage: 5 MILLIGRAM, BID

REACTIONS (5)
  - Platelet count decreased [Unknown]
  - Haematoma muscle [Unknown]
  - Haemoglobin decreased [Unknown]
  - Coagulation test abnormal [Unknown]
  - Chest pain [Unknown]
